FAERS Safety Report 14651662 (Version 1)
Quarter: 2018Q1

REPORT INFORMATION
  Report Type: Spontaneous
  Country: ES (occurrence: ES)
  Receive Date: 20180317
  Receipt Date: 20180317
  Transmission Date: 20180509
  Serious: Yes (Hospitalization)
  Sender: FDA-Public Use
  Company Number: ES-AUROBINDO-AUR-APL-2018-014640

PATIENT
  Age: 84 Year
  Sex: Female

DRUGS (2)
  1. SINTROM [Interacting]
     Active Substance: ACENOCOUMAROL
     Indication: ATRIAL FIBRILLATION
     Dosage: DTS:13 (1/4 LOS MARTES. RESTO DE D?AS 1/2 COMP)
     Route: 048
     Dates: start: 20150922, end: 20171225
  2. LEVOFLOXACIN 500 MG FILM-COATED TABLETS [Suspect]
     Active Substance: LEVOFLOXACIN
     Indication: RESPIRATORY TRACT INFECTION
     Dosage: 500 MILLIGRAM, ONCE A DAY
     Route: 048
     Dates: start: 20171220, end: 20171226

REACTIONS (2)
  - Abdominal wall haematoma [Recovering/Resolving]
  - Spontaneous haematoma [Recovering/Resolving]

NARRATIVE: CASE EVENT DATE: 20171222
